FAERS Safety Report 7784950-4 (Version None)
Quarter: 2011Q3

REPORT INFORMATION
  Report Type: 
  Country: None (occurrence: None)
  Receive Date: 20110928
  Receipt Date: 20110923
  Transmission Date: 20111222
  Serious: Yes (Other)
  Sender: FDA-Public Use
  Company Number: AR-ABBOTT-11P-007-0857573-00

PATIENT
  Sex: Female

DRUGS (1)
  1. HUMIRA [Suspect]
     Indication: RHEUMATOID ARTHRITIS
     Route: 058
     Dates: start: 20110801, end: 20110901

REACTIONS (4)
  - RENAL FAILURE [None]
  - EPISTAXIS [None]
  - HAEMOPTYSIS [None]
  - ARRHYTHMIA [None]
